FAERS Safety Report 5013706-0 (Version None)
Quarter: 2006Q2

REPORT INFORMATION
  Report Type: 
  Country: None (occurrence: None)
  Receive Date: 20060526
  Receipt Date: 20060526
  Transmission Date: 20061013
  Serious: Yes (Hospitalization)
  Sender: FDA-Public Use
  Company Number: None

PATIENT
  Age: 5 Year
  Sex: Female
  Weight: 23.587 kg

DRUGS (3)
  1. RYNATUS [Suspect]
     Indication: MULTIPLE ALLERGIES
     Dosage: 1 TABLET TWICE DAILY ORALLY [1 DOSE]
     Route: 048
     Dates: start: 20060317
  2. RYNATUS [Suspect]
     Indication: NASAL DECONGESTION THERAPY
     Dosage: 1 TABLET TWICE DAILY ORALLY [1 DOSE]
     Route: 048
     Dates: start: 20060317
  3. RYNATAN CHEWABLE TABLETS [Suspect]
     Dosage: [1 DOSE]
     Dates: start: 20060318

REACTIONS (6)
  - DRUG DISPENSING ERROR [None]
  - HEART RATE INCREASED [None]
  - LETHARGY [None]
  - MEDICATION ERROR [None]
  - SOMNOLENCE [None]
  - WRONG DRUG ADMINISTERED [None]
